FAERS Safety Report 10485260 (Version 1)
Quarter: 2014Q3

REPORT INFORMATION
  Report Type: Spontaneous
  Country: US (occurrence: CH)
  Receive Date: 20140930
  Receipt Date: 20140930
  Transmission Date: 20150326
  Serious: Yes (Other)
  Sender: FDA-Public Use
  Company Number: CH-FRI-1000071136

PATIENT
  Sex: Female

DRUGS (2)
  1. ASENAPINE [Suspect]
     Active Substance: ASENAPINE
     Indication: MANIA
  2. ASENAPINE [Suspect]
     Active Substance: ASENAPINE
     Indication: BIPOLAR I DISORDER
     Route: 060
     Dates: start: 20140310, end: 20140616

REACTIONS (3)
  - Nausea [Recovered/Resolved]
  - Flatulence [Recovered/Resolved]
  - Drug-induced liver injury [Recovered/Resolved]
